FAERS Safety Report 8053052-4 (Version None)
Quarter: 2011Q4

REPORT INFORMATION
  Report Type: 
  Country: None (occurrence: None)
  Receive Date: 20111213
  Receipt Date: 20101021
  Transmission Date: 20120403
  Serious: Yes (Other)
  Sender: FDA-Public Use
  Company Number: 2010SCPR002078

PATIENT
  Age: 53 Year
  Sex: Female

DRUGS (12)
  1. IMIPRAMINE HCL [Suspect]
     Indication: NARCOLEPSY
     Dosage: 10 MG, AT NIGHT, ORAL 5MG AT 9:30AM, 30MG AT 12:30PM AND 25MG AT 3:30PM, ORAL
     Route: 048
     Dates: start: 20100901
  2. IMIPRAMINE HCL [Suspect]
     Indication: CATAPLEXY
     Dosage: 10 MG, AT NIGHT, ORAL 5MG AT 9:30AM, 30MG AT 12:30PM AND 25MG AT 3:30PM, ORAL
     Route: 048
     Dates: start: 20100901
  3. BABY ASPIRIN (ACETYLSALICYLIC ACID) UNKNOWN [Concomitant]
  4. TOFRANIL [Suspect]
     Indication: NARCOLEPSY
     Dosage: 30 MG IN THE MORNING, 25 MG IN THE EVENING, 20 MG IN NIGHT, ORAL 35 MG AT 9:30AM, UNKNOWN
     Route: 048
  5. TOFRANIL [Suspect]
     Indication: CATAPLEXY
     Dosage: 30 MG IN THE MORNING, 25 MG IN THE EVENING, 20 MG IN NIGHT, ORAL 35 MG AT 9:30AM, UNKNOWN
     Route: 048
  6. TENORMIN [Concomitant]
  7. ZETIA (EZETIMIBE) UNKNOWN [Concomitant]
  8. CRESTOR [Concomitant]
  9. RITALIN [Concomitant]
  10. ANAPROX (NAPROXEN SODIUM) UNKNOWN [Concomitant]
  11. SINGULAIR (MONTELUKAST SODIUM) UNKNOWN [Concomitant]
  12. BACLOFEN [Concomitant]

REACTIONS (6)
  - NAUSEA [None]
  - SOMNOLENCE [None]
  - DRUG INEFFECTIVE [None]
  - HALLUCINATION [None]
  - ASTHENIA [None]
  - FATIGUE [None]
